FAERS Safety Report 9232225 (Version 1)
Quarter: 2013Q2

REPORT INFORMATION
  Report Type: Spontaneous
  Country: TW (occurrence: TW)
  Receive Date: 20130415
  Receipt Date: 20130415
  Transmission Date: 20140414
  Serious: Yes (Hospitalization)
  Sender: FDA-Public Use
  Company Number: TW-MYLANLABS-2013S1007443

PATIENT
  Age: 14 Year
  Sex: Male

DRUGS (5)
  1. CARBAMAZEPINE [Suspect]
     Route: 048
  2. CARBAMAZEPINE [Suspect]
     Route: 042
  3. CLONAZEPAM [Suspect]
     Route: 048
  4. CLONAZEPAM [Suspect]
     Route: 042
  5. PHENYTOIN [Suspect]
     Route: 042

REACTIONS (2)
  - Drug reaction with eosinophilia and systemic symptoms [Recovered/Resolved with Sequelae]
  - Myocarditis [Recovered/Resolved with Sequelae]
